FAERS Safety Report 10934725 (Version 2)
Quarter: 2015Q2

REPORT INFORMATION
  Report Type: Spontaneous
  Country: US (occurrence: US)
  Receive Date: 20150320
  Receipt Date: 20150617
  Transmission Date: 20150821
  Serious: No
  Sender: FDA-Public Use
  Company Number: US-GALDERMA-US15000506

PATIENT
  Age: 50 Year
  Sex: Female

DRUGS (6)
  1. SIMPLE FACE CLEANSER [Concomitant]
     Indication: THERAPEUTIC SKIN CARE TOPICAL
     Route: 061
  2. VITAMIN D [Concomitant]
     Active Substance: CHOLECALCIFEROL
     Dosage: 4000 IU
     Route: 048
  3. SYNTHROID [Concomitant]
     Active Substance: LEVOTHYROXINE SODIUM
     Dosage: 112 MCG
     Route: 048
  4. SIMPLE MOISTURIZIER [Concomitant]
     Indication: DRY SKIN PROPHYLAXIS
     Route: 061
  5. MAYBELLINE BB CREAM FOUNDATION [Concomitant]
     Route: 061
  6. MIRVASO [Suspect]
     Active Substance: BRIMONIDINE TARTRATE
     Indication: ROSACEA
     Dosage: 0.33%
     Route: 061
     Dates: start: 20150203, end: 20150208

REACTIONS (9)
  - Flushing [Recovered/Resolved]
  - Dermatitis [Recovered/Resolved]
  - Swelling face [Not Recovered/Not Resolved]
  - Product use issue [Recovered/Resolved]
  - Feeling hot [Recovered/Resolved]
  - Abnormal sensation in eye [Recovered/Resolved]
  - Erythema [Recovered/Resolved]
  - Rebound effect [Recovered/Resolved]
  - Drug effect decreased [Recovered/Resolved]

NARRATIVE: CASE EVENT DATE: 20150203
